FAERS Safety Report 21290148 (Version 1)
Quarter: 2022Q3

REPORT INFORMATION
  Report Type: Report from Study
  Country: DE (occurrence: DE)
  Receive Date: 20220902
  Receipt Date: 20220902
  Transmission Date: 20221026
  Serious: Yes (Death, Congenital Anomaly, Other)
  Sender: FDA-Public Use
  Company Number: DE-GLAXOSMITHKLINE-DECH2022GSK031482

PATIENT

DRUGS (1)
  1. IBUPROFEN [Suspect]
     Active Substance: IBUPROFEN
     Indication: Migraine
     Dosage: 800 MG, AS NEEDED

REACTIONS (6)
  - Foetal death [Fatal]
  - Cytogenetic abnormality [Unknown]
  - Congenital cardiovascular anomaly [Unknown]
  - Congenital genitourinary abnormality [Unknown]
  - Congenital cerebrovascular anomaly [Unknown]
  - Foetal exposure during pregnancy [Unknown]
